FAERS Safety Report 21846670 (Version 2)
Quarter: 2023Q1

REPORT INFORMATION
  Report Type: Spontaneous
  Country: CZ (occurrence: CZ)
  Receive Date: 20230111
  Receipt Date: 20230124
  Transmission Date: 20230418
  Serious: Yes (Hospitalization)
  Sender: FDA-Public Use
  Company Number: CZ-SA-SAC20230109001407

PATIENT
  Sex: Male

DRUGS (17)
  1. PRALUENT [Suspect]
     Active Substance: ALIROCUMAB
     Indication: Product used for unknown indication
     Dosage: 75 MG, QOW
     Route: 058
     Dates: start: 202206
  2. PRALUENT [Suspect]
     Active Substance: ALIROCUMAB
     Dosage: 150 MG, QOW
     Route: 058
     Dates: start: 202208
  3. CLOPIDOGREL BISULFATE [Concomitant]
     Active Substance: CLOPIDOGREL BISULFATE
     Dosage: UNK
  4. DAPAGLIFLOZIN [Concomitant]
     Active Substance: DAPAGLIFLOZIN
     Dosage: UNK
  5. RAMIPRIL [Concomitant]
     Active Substance: RAMIPRIL
     Dosage: 0-0-1
  6. SPIRONOLACTONE [Concomitant]
     Active Substance: SPIRONOLACTONE
     Dosage: UNK
  7. METOPROLOL SUCCINATE [Concomitant]
     Active Substance: METOPROLOL SUCCINATE
     Dosage: UNK
  8. MONOMACK [Concomitant]
     Dosage: UNK
  9. XARELTO [Concomitant]
     Active Substance: RIVAROXABAN
     Dosage: UNK
  10. CALCIUM CARBONATE\CHOLECALCIFEROL [Concomitant]
     Active Substance: CALCIUM CARBONATE\CHOLECALCIFEROL
     Dosage: UNK
  11. MEDROL [Concomitant]
     Active Substance: METHYLPREDNISOLONE
     Dosage: UNK
  12. PANTOPRAZOLE SODIUM [Concomitant]
     Active Substance: PANTOPRAZOLE SODIUM
     Dosage: UNK
  13. TRIMETAZIDINE DIHYDROCHLORIDE [Concomitant]
     Active Substance: TRIMETAZIDINE DIHYDROCHLORIDE
     Dosage: UNK
  14. MAGNESIUM LACTATE [Concomitant]
     Active Substance: MAGNESIUM LACTATE
     Dosage: UNK
  15. VIGANTOL [COLECALCIFEROL-CHOLESTERIN] [Concomitant]
     Dosage: 15 DROPS EVERY FRIDAYS
  16. METHOTREXATE [Concomitant]
     Active Substance: METHOTREXATE
     Dosage: 5MG TBL.1X WEEKLY 0-1-0 (ON MONDAY
  17. FOLIC ACID [Concomitant]
     Active Substance: FOLIC ACID
     Dosage: ACIDUM FOLICUM 10MG TBL. 1X WEEKLY 0-1-0 (ON TUESDAY) + INHALATIONS

REACTIONS (5)
  - Blood creatine phosphokinase increased [Unknown]
  - Muscular weakness [Unknown]
  - Low density lipoprotein decreased [Unknown]
  - Hospitalisation [Unknown]
  - Myalgia [Unknown]

NARRATIVE: CASE EVENT DATE: 20221201
